FAERS Safety Report 8822530 (Version 1)
Quarter: 2012Q4

REPORT INFORMATION
  Report Type: 
  Country: BR (occurrence: BR)
  Receive Date: 20121003
  Receipt Date: 20121003
  Transmission Date: 20130627
  Serious: Yes (Other)
  Sender: FDA-Public Use
  Company Number: BR-PFIZER INC-2012240408

PATIENT
  Sex: Female

DRUGS (2)
  1. CHAMPIX [Suspect]
     Indication: SMOKING CESSATION THERAPY
     Dosage: UNK
     Route: 048
  2. CHAMPIX [Suspect]
     Dosage: 1 DF, every 12 hours
     Route: 048

REACTIONS (4)
  - Delirium [Unknown]
  - Aggression [Unknown]
  - Feeling of relaxation [Unknown]
  - Therapeutic response unexpected [Unknown]
